FAERS Safety Report 7261905-X (Version None)
Quarter: 2011Q1

REPORT INFORMATION
  Report Type: 
  Country: None (occurrence: None)
  Receive Date: 20110130
  Receipt Date: 20101212
  Transmission Date: 20110831
  Serious: No
  Sender: FDA-Public Use
  Company Number: US-ABBOTT-10P-163-0691014-00

PATIENT
  Age: 42 Year
  Sex: Female

DRUGS (6)
  1. LOVASTATIN [Concomitant]
     Indication: BLOOD CHOLESTEROL INCREASED
  2. TOPICAL CREAMS [Concomitant]
     Indication: PSORIASIS
  3. TAZORAC [Concomitant]
     Indication: PRODUCT USED FOR UNKNOWN INDICATION
  4. HUMIRA [Suspect]
     Indication: PSORIASIS
     Dates: start: 20100901
  5. BETAMETHASONE [Concomitant]
  6. BETAMETHASONE [Concomitant]

REACTIONS (6)
  - HYPERHIDROSIS [None]
  - LYMPHADENOPATHY [None]
  - PYREXIA [None]
  - CHILLS [None]
  - SINUS HEADACHE [None]
  - FEELING HOT [None]
